APPROVED DRUG PRODUCT: CLORAZEPATE DIPOTASSIUM
Active Ingredient: CLORAZEPATE DIPOTASSIUM
Strength: 15MG
Dosage Form/Route: CAPSULE;ORAL
Application: A071244 | Product #001
Applicant: USL PHARMA INC
Approved: Jun 23, 1987 | RLD: No | RS: No | Type: DISCN